FAERS Safety Report 16310667 (Version 2)
Quarter: 2019Q2

REPORT INFORMATION
  Report Type: Spontaneous
  Country: BR (occurrence: BR)
  Receive Date: 20190514
  Receipt Date: 20190527
  Transmission Date: 20190711
  Serious: Yes (Other)
  Sender: FDA-Public Use
  Company Number: BR-SA-2019SA126735

PATIENT
  Sex: Female
  Weight: 78 kg

DRUGS (2)
  1. CLEXANE [Suspect]
     Active Substance: ENOXAPARIN SODIUM
     Indication: HYPERCOAGULATION
     Dosage: 1 DF, QD 1 SYRINGE DAILY
     Route: 065
     Dates: start: 2017, end: 2017
  2. ACETYLSALICYLIC ACID [Suspect]
     Active Substance: ASPIRIN
     Dosage: UNK UNK, UNK
     Route: 065

REACTIONS (3)
  - Product use in unapproved indication [Unknown]
  - Abortion [Unknown]
  - Exposure during pregnancy [Unknown]
